FAERS Safety Report 5252937-1 (Version None)
Quarter: 2007Q1

REPORT INFORMATION
  Report Type: 
  Country: None (occurrence: None)
  Receive Date: 20070301
  Receipt Date: 20070221
  Transmission Date: 20070707
  Serious: Yes (Hospitalization)
  Sender: FDA-Public Use
  Company Number: FR-AVENTIS-200710655FR

PATIENT
  Age: 52 Year
  Sex: Female

DRUGS (13)
  1. TARGOCID [Suspect]
     Indication: DRUG USE FOR UNKNOWN INDICATION
     Route: 042
     Dates: start: 20061216
  2. RIFADIN [Suspect]
     Indication: DRUG USE FOR UNKNOWN INDICATION
     Route: 048
     Dates: start: 20061220, end: 20070120
  3. CORTANCYL [Suspect]
     Indication: CANDIDIASIS
     Route: 048
     Dates: start: 20060401
  4. CORTANCYL [Suspect]
     Indication: RETINITIS
     Route: 048
     Dates: start: 20060401
  5. PREVISCAN                          /00789001/ [Suspect]
     Indication: PHLEBITIS
     Dosage: DOSE QUANTITY: 20; DOSE UNIT: MEGAUNITS
     Route: 048
     Dates: start: 20061220
  6. TRIFLUCAN [Suspect]
     Indication: CANDIDIASIS
     Route: 048
     Dates: start: 20060421, end: 20070102
  7. TRIFLUCAN [Suspect]
     Indication: RETINITIS
     Route: 048
     Dates: start: 20060421, end: 20070102
  8. INIPOMP                            /01263201/ [Suspect]
     Indication: DRUG USE FOR UNKNOWN INDICATION
     Route: 048
     Dates: end: 20070120
  9. INSULINE [Concomitant]
  10. TAREG [Concomitant]
     Indication: DRUG USE FOR UNKNOWN INDICATION
     Route: 048
  11. ATARAX                             /00058402/ [Concomitant]
     Indication: DRUG USE FOR UNKNOWN INDICATION
  12. FORTUM                             /00559702/ [Concomitant]
     Indication: DRUG USE FOR UNKNOWN INDICATION
     Route: 042
  13. TROPICANIDE [Concomitant]
     Indication: DRUG USE FOR UNKNOWN INDICATION
     Route: 031

REACTIONS (1)
  - UVEITIS [None]
